FAERS Safety Report 6732868 (Version 4)
Quarter: 2015Q4

REPORT INFORMATION
  Report Type: Report from Study
  Country: US (occurrence: US)
  Receive Date: 20080821
  Receipt Date: 20151127
  Transmission Date: 20160305
  Serious: Yes (Hospitalization)
  Sender: FDA-Public Use
  Company Number: US-JNJFOC-20080803540

PATIENT
  Age: 16 Year
  Sex: Female
  Weight: 116.9 kg

DRUGS (8)
  1. 5-AMINOSALICYLIC ACID [Concomitant]
     Active Substance: MESALAMINE
     Route: 054
  2. PREDNISONE. [Concomitant]
     Active Substance: PREDNISONE
  3. ROWASA ENEMAS [Concomitant]
  4. INFLIXIMAB [Suspect]
     Active Substance: INFLIXIMAB
     Indication: CROHN^S DISEASE
     Route: 042
  5. INFLIXIMAB [Suspect]
     Active Substance: INFLIXIMAB
     Indication: CROHN^S DISEASE
     Route: 042
     Dates: start: 20080626
  6. HUMIRA [Concomitant]
     Active Substance: ADALIMUMAB
     Dates: start: 200801
  7. PREVACID [Concomitant]
     Active Substance: LANSOPRAZOLE
  8. MUTIVITAMIN [Concomitant]

REACTIONS (1)
  - Gastroenteritis [Recovered/Resolved]

NARRATIVE: CASE EVENT DATE: 20080802
